FAERS Safety Report 7169907-9 (Version None)
Quarter: 2010Q4

REPORT INFORMATION
  Report Type: 
  Country: None (occurrence: None)
  Receive Date: 20101214
  Receipt Date: 20101214
  Transmission Date: 20110411
  Serious: Yes (Hospitalization)
  Sender: FDA-Public Use
  Company Number: None

PATIENT
  Sex: Male
  Weight: 77 kg

DRUGS (2)
  1. CARBOPLATIN [Suspect]
     Dosage: 762 MG
     Dates: end: 20101123
  2. TAXOL [Suspect]
     Dosage: 390 MG
     Dates: end: 20101123

REACTIONS (5)
  - ABASIA [None]
  - ASTHENIA [None]
  - BONE PAIN [None]
  - CONDITION AGGRAVATED [None]
  - SKIN ULCER [None]
